FAERS Safety Report 15114022 (Version 2)
Quarter: 2018Q3

REPORT INFORMATION
  Report Type: Spontaneous
  Country: US (occurrence: US)
  Receive Date: 20180706
  Receipt Date: 20180718
  Transmission Date: 20181010
  Serious: No
  Sender: FDA-Public Use
  Company Number: US-SHIRE-US201824112

PATIENT
  Age: 61 Year
  Sex: Female
  Weight: 69.84 kg

DRUGS (5)
  1. CELEXA [Concomitant]
     Active Substance: CITALOPRAM HYDROBROMIDE
     Indication: ANXIETY
  2. XIIDRA [Suspect]
     Active Substance: LIFITEGRAST
     Dosage: UNK UNK, 2X/DAY:BID
     Route: 047
     Dates: start: 20180418, end: 201805
  3. ZENTACIN [Concomitant]
     Indication: GASTROOESOPHAGEAL REFLUX DISEASE
  4. XIIDRA [Suspect]
     Active Substance: LIFITEGRAST
     Indication: DRY EYE
     Dosage: 1 GTT, 2X/DAY:BID
     Route: 047
     Dates: start: 20180417, end: 201805
  5. CELEXA [Concomitant]
     Active Substance: CITALOPRAM HYDROBROMIDE
     Indication: INSOMNIA

REACTIONS (2)
  - Instillation site pruritus [Not Recovered/Not Resolved]
  - Pruritus generalised [Recovered/Resolved]

NARRATIVE: CASE EVENT DATE: 201805
